FAERS Safety Report 15656677 (Version 2)
Quarter: 2018Q4

REPORT INFORMATION
  Report Type: Report from Study
  Country: US (occurrence: ES)
  Receive Date: 20181126
  Receipt Date: 20181228
  Transmission Date: 20190205
  Serious: Yes (Hospitalization)
  Sender: FDA-Public Use
  Company Number: US-SA-2018SA314840

PATIENT
  Age: 67 Year
  Sex: Female
  Weight: 51 kg

DRUGS (16)
  1. OXALIPLATIN. [Suspect]
     Active Substance: OXALIPLATIN
     Dosage: 122 MG, QCY
     Route: 042
     Dates: start: 20180905, end: 20180905
  2. FLUOROURACIL. [Suspect]
     Active Substance: FLUOROURACIL
     Indication: PANCREATIC CARCINOMA METASTATIC
     Dosage: 575 MG, QCY
     Route: 040
     Dates: start: 20181019, end: 20181019
  3. ENANTYUM [Concomitant]
     Active Substance: DEXKETOPROFEN TROMETAMOL
     Indication: FLANK PAIN
     Dosage: UNK
     Dates: start: 20180904
  4. FLUOROURACIL. [Suspect]
     Active Substance: FLUOROURACIL
     Dosage: 3450 MG, QCY
     Route: 042
     Dates: start: 20180905, end: 20180905
  5. FOLINIC ACID [Suspect]
     Active Substance: LEUCOVORIN
     Dosage: 575 MG, QCY
     Route: 042
     Dates: start: 20180905, end: 20180905
  6. ESIDREX [Concomitant]
     Active Substance: HYDROCHLOROTHIAZIDE
     Dosage: UNK
     Dates: start: 20180219
  7. ENANTYUM [Concomitant]
     Active Substance: DEXKETOPROFEN TROMETAMOL
     Indication: ABDOMINAL PAIN
  8. FENTANYL TTS SANDOZ [Concomitant]
     Indication: ABDOMINAL PAIN
  9. FOLINIC ACID [Suspect]
     Active Substance: LEUCOVORIN
     Indication: PANCREATIC CARCINOMA METASTATIC
     Dosage: 575 MG, QCY
     Route: 042
     Dates: start: 20181017, end: 20181017
  10. AVARIC [Concomitant]
     Indication: FLANK PAIN
     Dosage: UNK
     Dates: start: 20180904
  11. FENTANYL TTS SANDOZ [Concomitant]
     Indication: FLANK PAIN
     Dosage: UNK
     Dates: start: 20180918
  12. PRIMPERAN [Concomitant]
     Active Substance: METOCLOPRAMIDE HYDROCHLORIDE
     Indication: NAUSEA
     Dosage: UNK
     Dates: start: 20180908
  13. OXALIPLATIN. [Suspect]
     Active Substance: OXALIPLATIN
     Indication: PANCREATIC CARCINOMA METASTATIC
     Dosage: 122 MG, QCY
     Route: 042
     Dates: start: 20181017, end: 20181017
  14. FLUOROURACIL. [Suspect]
     Active Substance: FLUOROURACIL
     Dosage: 3450 MG, QCY
     Route: 042
     Dates: start: 20181019, end: 20181019
  15. FLUOROURACIL. [Suspect]
     Active Substance: FLUOROURACIL
     Dosage: 575 MG, QCY
     Route: 040
     Dates: start: 20180905, end: 20180905
  16. AVARIC [Concomitant]
     Indication: ABDOMINAL PAIN

REACTIONS (1)
  - Toxicity to various agents [Recovered/Resolved]

NARRATIVE: CASE EVENT DATE: 20181028
